FAERS Safety Report 5302635-0 (Version None)
Quarter: 2007Q2

REPORT INFORMATION
  Report Type: 
  Country: None (occurrence: None)
  Receive Date: 20070419
  Receipt Date: 20070409
  Transmission Date: 20071010
  Serious: Yes (Hospitalization)
  Sender: FDA-Public Use
  Company Number: JP-SANOFI-SYNTHELABO-A01200611027

PATIENT
  Sex: Male

DRUGS (18)
  1. FLUOROURACIL [Suspect]
     Dosage: 500 MG IV BOLUS (331.1MG/M2) FOLLOWED BY 3500 MG (2317.MG/M2) INFUSION ON D1+2
     Route: 042
     Dates: start: 20061204, end: 20061205
  2. FRANDOL S [Concomitant]
     Indication: ANGINA PECTORIS
     Route: 065
     Dates: start: 20061208
  3. ALEVIATIN [Concomitant]
     Indication: CONVULSION
     Dosage: 125-125X3 MG
     Route: 042
     Dates: start: 20061207, end: 20061214
  4. PERDIPINE [Concomitant]
     Indication: BLOOD PRESSURE MANAGEMENT
     Dosage: 2-20 MG INTRAVENOUS
     Route: 042
     Dates: start: 20061206, end: 20061210
  5. DALACIN [Concomitant]
     Route: 042
     Dates: start: 20061206, end: 20061210
  6. UNASYN [Concomitant]
     Route: 042
     Dates: start: 20061206, end: 20061210
  7. OXYCONTIN [Concomitant]
     Route: 048
     Dates: start: 20061130
  8. FLOMOX [Concomitant]
     Route: 048
     Dates: start: 20061130, end: 20061202
  9. NORVASC [Concomitant]
     Route: 048
     Dates: start: 20061001
  10. LOXONIN [Concomitant]
     Route: 048
     Dates: start: 20061001
  11. LAC-B [Concomitant]
     Route: 048
     Dates: start: 20061001
  12. AMOBAN [Concomitant]
     Route: 048
     Dates: start: 20061001
  13. DOGMATYL [Concomitant]
     Route: 048
     Dates: start: 20061001
  14. DECADRON [Concomitant]
     Route: 042
     Dates: start: 20061204, end: 20061204
  15. CALCICOL [Concomitant]
     Route: 042
     Dates: start: 20061204, end: 20061204
  16. KYTRIL [Concomitant]
     Route: 042
     Dates: start: 20061204, end: 20061206
  17. OXALIPLATIN [Suspect]
     Indication: RECTAL CANCER
     Route: 042
     Dates: start: 20061204, end: 20061204
  18. LEUCOVORIN CALCIUM [Suspect]
     Route: 042
     Dates: start: 20061204, end: 20061204

REACTIONS (2)
  - LOSS OF CONSCIOUSNESS [None]
  - METABOLIC ACIDOSIS [None]
